FAERS Safety Report 7504389-6 (Version None)
Quarter: 2011Q2

REPORT INFORMATION
  Report Type: 
  Country: None (occurrence: None)
  Receive Date: 20110525
  Receipt Date: 20110506
  Transmission Date: 20111010
  Serious: Yes (Life-Threatening, Hospitalization, Other)
  Sender: FDA-Public Use
  Company Number: PHHY2011FR17794

PATIENT
  Sex: Male
  Weight: 100 kg

DRUGS (10)
  1. RASILEZ HCT [Suspect]
     Indication: HYPERTENSION
     Dosage: 300/12.5 MG, QD
     Route: 048
     Dates: start: 20101105, end: 20110210
  2. PRAVIGARD PAC (COPACKAGED) [Concomitant]
     Route: 048
  3. FUROSEMIDE [Concomitant]
     Dosage: 120 MG, QD
  4. ZANIDIP [Concomitant]
     Dosage: 20 MG, QD
  5. LANTUS [Concomitant]
     Dosage: 60 IU, UNK
  6. RASILEZ HCT [Suspect]
     Indication: PROTEINURIA
  7. NOVORAPID [Concomitant]
  8. EUPRESSYL [Concomitant]
     Dosage: 60 MG, UNK
     Route: 048
  9. ESOMEPRAZOLE MAGNESIUM [Concomitant]
     Dosage: 20 MG, QD
     Route: 048
  10. GABAPENTIN [Concomitant]
     Dosage: 600 MG, UNK

REACTIONS (6)
  - WEIGHT DECREASED [None]
  - HYPOKALAEMIA [None]
  - DECREASED APPETITE [None]
  - BLOOD CREATININE INCREASED [None]
  - DIARRHOEA [None]
  - RENAL FAILURE ACUTE [None]
